FAERS Safety Report 18237761 (Version 2)
Quarter: 2020Q3

REPORT INFORMATION
  Report Type: Report from Study
  Country: US (occurrence: US)
  Receive Date: 20200907
  Receipt Date: 20200914
  Transmission Date: 20201103
  Serious: Yes (Other)
  Sender: FDA-Public Use
  Company Number: US-BAUSCH-BL-2020-025357

PATIENT
  Age: 73 Year
  Sex: Female

DRUGS (1)
  1. XIFAXAN [Suspect]
     Active Substance: RIFAXIMIN
     Indication: PRODUCT USED FOR UNKNOWN INDICATION
     Route: 048

REACTIONS (6)
  - Insurance issue [Unknown]
  - Interstitial lung disease [Not Recovered/Not Resolved]
  - Immune system disorder [Not Recovered/Not Resolved]
  - Inability to afford medication [Unknown]
  - Gastrointestinal disorder [Not Recovered/Not Resolved]
  - Scleroderma [Not Recovered/Not Resolved]
